FAERS Safety Report 7371689-2 (Version None)
Quarter: 2011Q1

REPORT INFORMATION
  Report Type: 
  Country: None (occurrence: None)
  Receive Date: 20110324
  Receipt Date: 20110315
  Transmission Date: 20110831
  Serious: Yes (Hospitalization, Other)
  Sender: FDA-Public Use
  Company Number: US-ROCHE-479480

PATIENT
  Sex: Male
  Weight: 90.7 kg

DRUGS (1)
  1. ACCUTANE [Suspect]
     Indication: ACNE
     Route: 065
     Dates: start: 19850615, end: 19860217

REACTIONS (24)
  - HAEMOGLOBIN DECREASED [None]
  - COLITIS [None]
  - ANAEMIA [None]
  - DEHYDRATION [None]
  - PANCREATITIS [None]
  - DEEP VEIN THROMBOSIS [None]
  - BASAL CELL CARCINOMA [None]
  - COLITIS ULCERATIVE [None]
  - ILEITIS [None]
  - INFLAMMATORY BOWEL DISEASE [None]
  - ANGIOPATHY [None]
  - DRY SKIN [None]
  - HAEMATOCRIT DECREASED [None]
  - PROCTITIS ULCERATIVE [None]
  - HEPATIC ENZYME INCREASED [None]
  - HAEMORRHOIDS [None]
  - CHEILITIS [None]
  - TENDONITIS [None]
  - THROMBOSIS [None]
  - RECTAL HAEMORRHAGE [None]
  - IRRITABLE BOWEL SYNDROME [None]
  - THYROID NEOPLASM [None]
  - THROMBOPHLEBITIS [None]
  - BLOOD GLUCOSE DECREASED [None]
